FAERS Safety Report 23109896 (Version 1)
Quarter: 2023Q4

REPORT INFORMATION
  Report Type: Spontaneous
  Country: US (occurrence: None)
  Receive Date: 20231026
  Receipt Date: 20231026
  Transmission Date: 20240110
  Serious: No
  Sender: FDA-Public Use
  Company Number: 2023A241314

PATIENT
  Sex: Male

DRUGS (3)
  1. SEROQUEL [Interacting]
     Active Substance: QUETIAPINE FUMARATE
     Route: 048
  2. CAPRELSA [Interacting]
     Active Substance: VANDETANIB
  3. MORPHINE [Interacting]
     Active Substance: MORPHINE

REACTIONS (3)
  - Drug interaction [Unknown]
  - Extra dose administered [Unknown]
  - Quality of life decreased [Unknown]
